FAERS Safety Report 5859887-8 (Version None)
Quarter: 2008Q3

REPORT INFORMATION
  Report Type: 
  Country: None (occurrence: None)
  Receive Date: 20080818
  Receipt Date: 20080630
  Transmission Date: 20090109
  Serious: No
  Sender: FDA-Public Use
  Company Number: WAES 0807USA00068

PATIENT
  Age: 76 Year
  Sex: Female

DRUGS (7)
  1. JANUVIA [Suspect]
     Indication: TYPE 2 DIABETES MELLITUS
     Dosage: 50 MG/DAILY/PO
     Route: 048
     Dates: start: 20080612
  2. MICARDIS [Concomitant]
  3. MIRALAX [Concomitant]
  4. ASPIRIN [Concomitant]
  5. CLONIDINE [Concomitant]
  6. LABETALOL HYDROCHLORIDE [Concomitant]
  7. UBIDECARENONE [Concomitant]

REACTIONS (2)
  - CONSTIPATION [None]
  - FAECES DISCOLOURED [None]
